FAERS Safety Report 5797452-1 (Version None)
Quarter: 2008Q2

REPORT INFORMATION
  Report Type: 
  Country: None (occurrence: None)
  Receive Date: 20080630
  Receipt Date: 20080617
  Transmission Date: 20081010
  Serious: Yes (Hospitalization)
  Sender: FDA-Public Use
  Company Number: 20080156

PATIENT
  Sex: Male

DRUGS (2)
  1. ACETYLCYSTEINE SOLUTION, USP (7604-25) 200 MG/ML (20%) [Suspect]
     Indication: INCREASED VISCOSITY OF BRONCHIAL SECRETION
     Dosage: 4 ML (800 MG.) VIA NEBULIZER RESPIRATORY
     Route: 055
     Dates: start: 20080604, end: 20080613
  2. DUO NEB, EVERY 4 HOURS RESPIRATORY ALBUTEROL 2.5 MG/IPRATROPIUM 0.5 MG [Concomitant]

REACTIONS (1)
  - HYPOXIA [None]
